FAERS Safety Report 5261510-0 (Version None)
Quarter: 2007Q1

REPORT INFORMATION
  Report Type: 
  Country: None (occurrence: None)
  Receive Date: 20061218
  Receipt Date: 20060822
  Transmission Date: 20070707
  Serious: No
  Sender: FDA-Public Use
  Company Number: US200608004797

PATIENT
  Age: 34 Year
  Sex: Male

DRUGS (1)
  1. CIALIS [Suspect]
     Dosage: 20 MG
     Dates: start: 20060819, end: 20060822

REACTIONS (2)
  - BACK PAIN [None]
  - PAIN IN EXTREMITY [None]
